FAERS Safety Report 11608536 (Version 1)
Quarter: 2015Q4

REPORT INFORMATION
  Report Type: Spontaneous
  Country: US (occurrence: US)
  Receive Date: 20151007
  Receipt Date: 20151007
  Transmission Date: 20160304
  Serious: Yes (Hospitalization)
  Sender: FDA-Public Use
  Company Number: US-BAYER-2015-438516

PATIENT
  Age: 58 Year
  Sex: Female
  Weight: 104.31 kg

DRUGS (5)
  1. CORICIDIN HBP DAY AND NIGHT [Suspect]
     Active Substance: ACETAMINOPHEN\CHLORPHENIRAMINE MALEATE\DEXTROMETHORPHAN HYDROBROMIDE\GUAIFENESIN
     Indication: NASOPHARYNGITIS
     Dosage: UNK
     Route: 048
     Dates: start: 20150928
  2. CORICIDIN HBP DAY AND NIGHT [Suspect]
     Active Substance: ACETAMINOPHEN\CHLORPHENIRAMINE MALEATE\DEXTROMETHORPHAN HYDROBROMIDE\GUAIFENESIN
     Indication: NASOPHARYNGITIS
     Dosage: 2 DF, TID
     Route: 048
     Dates: start: 20150928
  3. BAYER GENUINE ASPIRIN [Suspect]
     Active Substance: ASPIRIN
  4. BAYER ASPIRIN REGIMEN CHEWABLE LOW DOSE ASPIRIN ORANGE [Suspect]
     Active Substance: ASPIRIN
     Dosage: 1 DF, QD
  5. CORICIDIN HBP DAY AND NIGHT [Suspect]
     Active Substance: ACETAMINOPHEN\CHLORPHENIRAMINE MALEATE\DEXTROMETHORPHAN HYDROBROMIDE\GUAIFENESIN
     Indication: RHINORRHOEA

REACTIONS (5)
  - Product use issue [None]
  - Urticaria [Recovered/Resolved]
  - Drug hypersensitivity [None]
  - Upper-airway cough syndrome [Not Recovered/Not Resolved]
  - Head discomfort [Not Recovered/Not Resolved]

NARRATIVE: CASE EVENT DATE: 20151001
